FAERS Safety Report 7673533-2 (Version None)
Quarter: 2011Q3

REPORT INFORMATION
  Report Type: 
  Country: None (occurrence: None)
  Receive Date: 20110810
  Receipt Date: 20110802
  Transmission Date: 20111222
  Serious: Yes (Death, Life-Threatening, Hospitalization)
  Sender: FDA-Public Use
  Company Number: SE-JNJFOC-20110802670

PATIENT
  Age: 59 Year
  Sex: Male

DRUGS (7)
  1. PREDNISOLONE [Concomitant]
     Indication: MULTIPLE MYELOMA
     Dosage: DAY 1-4, 9-12
     Route: 048
  2. PHENYTOIN [Suspect]
     Indication: EPILEPSY
     Route: 065
  3. CYCLOPHOSPHAMIDE [Concomitant]
     Indication: MULTIPLE MYELOMA
     Route: 042
  4. CYCLOPHOSPHAMIDE [Concomitant]
     Dosage: DAY 1
     Route: 042
  5. CARBAMAZEPINE [Suspect]
     Indication: EPILEPSY
     Route: 065
  6. MELPHALAN HYDROCHLORIDE [Concomitant]
     Dosage: DAY 1-4, 9-12
     Route: 065
  7. TOPIRAMATE [Suspect]
     Indication: EPILEPSY
     Route: 048

REACTIONS (1)
  - HISTIOCYTOSIS HAEMATOPHAGIC [None]
